FAERS Safety Report 9803284 (Version 3)
Quarter: 2014Q2

REPORT INFORMATION
  Report Type: Spontaneous
  Country: US (occurrence: None)
  Receive Date: 20140102
  Receipt Date: 20140507
  Transmission Date: 20141212
  Serious: Yes (Hospitalization)
  Sender: FDA-Public Use
  Company Number: AUR-APL-2013-10896

PATIENT
  Age: 62 Year
  Sex: Female
  Weight: 89.34 kg

DRUGS (2)
  1. LISINOPRIL (LISINOPRIL) [Suspect]
     Indication: HYPERTENSION
     Dosage: 20MG (20MG, 1 IN 1D) ORAL
     Route: 048
     Dates: start: 2011, end: 20131217
  2. NEXIUM (ESOMEPRAZOLE MAGNESIUM) [Concomitant]

REACTIONS (2)
  - Hypersensitivity [None]
  - Palpitations [None]
